FAERS Safety Report 18066065 (Version 2)
Quarter: 2020Q4

REPORT INFORMATION
  Report Type: Spontaneous
  Country: CH (occurrence: CH)
  Receive Date: 20200724
  Receipt Date: 20201023
  Transmission Date: 20210113
  Serious: Yes (Other)
  Sender: FDA-Public Use
  Company Number: CH-AMERICAN REGENT INC-2020001473

PATIENT
  Age: 26 Year
  Sex: Female
  Weight: 63.5 kg

DRUGS (5)
  1. MEPHAMESON [Concomitant]
     Active Substance: DEXAMETHASONE
     Indication: PROPHYLAXIS
     Dosage: 8 MILLIGRAM
     Route: 042
  2. FERINJECT [Suspect]
     Active Substance: FERRIC CARBOXYMALTOSE
     Indication: MINERAL SUPPLEMENTATION
  3. FERINJECT [Suspect]
     Active Substance: FERRIC CARBOXYMALTOSE
     Indication: SERUM FERRITIN ABNORMAL
  4. LUVIT [Concomitant]
     Indication: PRODUCT USED FOR UNKNOWN INDICATION
     Dosage: 0.2 MILLILITER
     Route: 065
  5. FERINJECT [Suspect]
     Active Substance: FERRIC CARBOXYMALTOSE
     Indication: HAEMOGLOBIN ABNORMAL
     Dosage: 800 MG, 1 TOTAL
     Dates: start: 20191120, end: 20191120

REACTIONS (5)
  - Meconium in amniotic fluid [Unknown]
  - Rash erythematous [Recovered/Resolved]
  - Cholestasis of pregnancy [Unknown]
  - Pruritus [Recovered/Resolved]
  - Maternal exposure during pregnancy [Recovered/Resolved]

NARRATIVE: CASE EVENT DATE: 20191120
